FAERS Safety Report 5008471-7 (Version None)
Quarter: 2006Q2

REPORT INFORMATION
  Report Type: 
  Country: None (occurrence: None)
  Receive Date: 20060522
  Receipt Date: 20060522
  Transmission Date: 20061013
  Serious: Yes (Death)
  Sender: FDA-Public Use
  Company Number: None

PATIENT
  Age: 58 Year
  Sex: Male
  Weight: 72.5755 kg

DRUGS (3)
  1. PAXIL [Suspect]
     Indication: ANXIETY
     Dosage: EVERY BEDTIME  PO
     Route: 048
     Dates: start: 20020901, end: 20060204
  2. PAXIL [Suspect]
     Indication: DEPRESSION
     Dosage: EVERY BEDTIME  PO
     Route: 048
     Dates: start: 20020901, end: 20060204
  3. PAXIL [Suspect]
     Indication: SOCIAL PROBLEM
     Dosage: EVERY BEDTIME  PO
     Route: 048
     Dates: start: 20020901, end: 20060204

REACTIONS (8)
  - BLOOD ALCOHOL INCREASED [None]
  - COMPLETED SUICIDE [None]
  - DIVORCED [None]
  - GUN SHOT WOUND [None]
  - HEAD INJURY [None]
  - IMPRISONMENT [None]
  - MARITAL PROBLEM [None]
  - ROAD TRAFFIC ACCIDENT [None]
